FAERS Safety Report 7501948-1 (Version None)
Quarter: 2011Q2

REPORT INFORMATION
  Report Type: 
  Country: None (occurrence: None)
  Receive Date: 20110525
  Receipt Date: 20110519
  Transmission Date: 20111010
  Serious: Yes (Other)
  Sender: FDA-Public Use
  Company Number: US-PFIZER INC-2011108727

PATIENT
  Sex: Female
  Weight: 90.7 kg

DRUGS (7)
  1. XALATAN [Suspect]
     Dosage: 1 GTT IN THE RIGHT EYE AT BEDTIME DAILY
     Route: 047
     Dates: start: 20110101
  2. LASIX [Suspect]
     Indication: CARDIAC DISORDER
     Dosage: 40 MG, 1X/DAY
     Route: 048
  3. LISINOPRIL [Concomitant]
     Indication: BLOOD PRESSURE ABNORMAL
     Dosage: 40 MG DAILY
     Route: 048
  4. METOPROLOL [Concomitant]
     Indication: CARDIAC DISORDER
     Dosage: 50 MG, 2X/DAY
     Route: 048
  5. PLAVIX [Concomitant]
     Indication: CEREBROVASCULAR ACCIDENT
     Dosage: 75 MG DAILY
     Route: 048
  6. ACETYLSALICYLIC ACID [Concomitant]
     Indication: CEREBROVASCULAR ACCIDENT
     Dosage: 325 MG DAILY
     Route: 048
  7. ACETYLSALICYLIC ACID [Concomitant]
     Indication: ANTICOAGULANT THERAPY

REACTIONS (2)
  - VISION BLURRED [None]
  - BLOOD POTASSIUM DECREASED [None]
